FAERS Safety Report 4503115-2 (Version None)
Quarter: 2004Q4

REPORT INFORMATION
  Report Type: 
  Country: None (occurrence: None)
  Receive Date: 20041112
  Receipt Date: 20041105
  Transmission Date: 20050328
  Serious: Yes (Death, Life-Threatening)
  Sender: FDA-Public Use
  Company Number: 200410848BCA

PATIENT
  Age: 75 Year
  Sex: Female

DRUGS (8)
  1. MOXIFLOXACIN INJECTION (MOXIFLOXACIN) [Suspect]
     Indication: SEPSIS
     Dosage: 400 MG, TOTAL DAILY, INTRAVENOUS
     Route: 042
     Dates: start: 20041001
  2. TRANSFUSION OF PACKED RED BLOOD CELLS [Concomitant]
  3. DOPAMINE INFUSION [Concomitant]
  4. NA BICARBONATE INFUSION [Concomitant]
  5. VITAMIN K [Concomitant]
  6. ETHACRYNIC ACID INJECTION [Concomitant]
  7. FUROSEMIDE [Concomitant]
  8. KAYEXALATE [Concomitant]

REACTIONS (1)
  - HAEMOLYSIS [None]
